FAERS Safety Report 7562894-0 (Version None)
Quarter: 2011Q2

REPORT INFORMATION
  Report Type: 
  Country: None (occurrence: None)
  Receive Date: 20110621
  Receipt Date: 20110621
  Transmission Date: 20111010
  Serious: Yes (Hospitalization)
  Sender: FDA-Public Use
  Company Number: None

PATIENT
  Age: 61 Year
  Sex: Male
  Weight: 67 kg

DRUGS (1)
  1. NEVIRAPINE [Suspect]
     Indication: HIV INFECTION
     Dosage: 200 MG EVERY DAY PO
     Route: 048
     Dates: start: 20110323, end: 20110422

REACTIONS (6)
  - ORAL PAIN [None]
  - MALAISE [None]
  - STEVENS-JOHNSON SYNDROME [None]
  - HEPATIC ENZYME INCREASED [None]
  - PYREXIA [None]
  - RASH [None]
